FAERS Safety Report 5425736-5 (Version None)
Quarter: 2007Q3

REPORT INFORMATION
  Report Type: 
  Country: None (occurrence: None)
  Receive Date: 20070824
  Receipt Date: 20070813
  Transmission Date: 20080115
  Serious: Yes (Other)
  Sender: FDA-Public Use
  Company Number: US-PFIZER INC-2007069218

PATIENT
  Sex: Male

DRUGS (11)
  1. CHANTIX [Suspect]
     Indication: SMOKING CESSATION THERAPY
     Dosage: TEXT:1MG BID EVERY DAY TDD:2MG
  2. SINEMET [Concomitant]
  3. LIPITOR [Concomitant]
     Dosage: TEXT:10 MG ONE-HALF TABLET DAILY
  4. DIOVAN [Concomitant]
     Dosage: TEXT:160 MG DAILY
  5. KLOR-CON [Concomitant]
     Dosage: TEXT:10 MEQ DAILY
  6. ATENOLOL [Concomitant]
     Dosage: TEXT:50 MG DAILY
  7. LASIX [Concomitant]
     Dosage: TEXT:40 MG DAILY
  8. SEROQUEL [Concomitant]
     Dosage: TEXT:50 MG AT BEDTIME
  9. ASPIRIN [Concomitant]
     Dosage: TEXT:325 MG DAILY
  10. CLOMIPRAMINE HCL [Concomitant]
     Dosage: TEXT:25 MG IN AM 2 AT BEDTIME
  11. DILTIAZEM [Concomitant]
     Dosage: TEXT:180 MG DAILY

REACTIONS (3)
  - CLUMSINESS [None]
  - FALL [None]
  - SOMNAMBULISM [None]
